FAERS Safety Report 21579391 (Version 3)
Quarter: 2022Q4

REPORT INFORMATION
  Report Type: Report from Study
  Country: TH (occurrence: TH)
  Receive Date: 20221110
  Receipt Date: 20221221
  Transmission Date: 20230113
  Serious: Yes (Hospitalization)
  Sender: FDA-Public Use
  Company Number: TH-TAKEDA-2022TUS082413

PATIENT
  Age: 31 Year
  Sex: Female

DRUGS (1)
  1. BRENTUXIMAB VEDOTIN [Suspect]
     Active Substance: BRENTUXIMAB VEDOTIN
     Indication: Hodgkin^s disease
     Dosage: 95 MILLIGRAM, Q3WEEKS
     Route: 042
     Dates: start: 20220710

REACTIONS (4)
  - White blood cell count decreased [Unknown]
  - Respiratory rate increased [Unknown]
  - Platelet count decreased [Unknown]
  - Off label use [Unknown]
